FAERS Safety Report 15892762 (Version 1)
Quarter: 2019Q1

REPORT INFORMATION
  Report Type: Report from Study
  Country: US (occurrence: US)
  Receive Date: 20190130
  Receipt Date: 20190130
  Transmission Date: 20190417
  Serious: No
  Sender: FDA-Public Use
  Company Number: US-EXELIXIS-CABO-18016087

PATIENT
  Sex: Male

DRUGS (6)
  1. CALCIUM [Concomitant]
     Active Substance: CALCIUM
  2. DELZICOL [Concomitant]
     Active Substance: MESALAMINE
  3. FISH OIL [Concomitant]
     Active Substance: FISH OIL
  4. TYLENOL [Concomitant]
     Active Substance: ACETAMINOPHEN
  5. CABOMETYX [Suspect]
     Active Substance: CABOZANTINIB S-MALATE
     Indication: RENAL CANCER
     Dosage: 40 MG, QD
     Route: 048
     Dates: start: 20180727
  6. AMLODIPINE [Concomitant]
     Active Substance: AMLODIPINE BESYLATE

REACTIONS (8)
  - Nausea [Unknown]
  - Dysgeusia [Unknown]
  - Pain in extremity [Unknown]
  - Fatigue [Unknown]
  - Oral pain [Unknown]
  - Skin ulcer [Unknown]
  - Sensory disturbance [Unknown]
  - Diarrhoea [Unknown]

NARRATIVE: CASE EVENT DATE: 2018
